FAERS Safety Report 5672541-0 (Version None)
Quarter: 2008Q1

REPORT INFORMATION
  Report Type: 
  Country: None (occurrence: None)
  Receive Date: 20080319
  Receipt Date: 20080310
  Transmission Date: 20080703
  Serious: Yes (Other)
  Sender: FDA-Public Use
  Company Number: PHEH2007US02298

PATIENT
  Age: 62 Year
  Sex: Male

DRUGS (2)
  1. FORADIL [Suspect]
     Indication: ASTHMA
     Dosage: UNK, UNK
     Dates: start: 20070101, end: 20080309
  2. ALBUTEROL [Concomitant]
     Indication: ASTHMA

REACTIONS (9)
  - DEVICE MALFUNCTION [None]
  - DYSPNOEA [None]
  - FEELING ABNORMAL [None]
  - LUNG DISORDER [None]
  - PHARMACEUTICAL PRODUCT COMPLAINT [None]
  - PHARYNGOLARYNGEAL PAIN [None]
  - TOOTH INFECTION [None]
  - TOOTH LOSS [None]
  - TOOTH REPAIR [None]
